FAERS Safety Report 13930621 (Version 3)
Quarter: 2017Q3

REPORT INFORMATION
  Report Type: Report from Study
  Country: FR (occurrence: FR)
  Receive Date: 20170901
  Receipt Date: 20170906
  Transmission Date: 20171127
  Serious: Yes (Death, Hospitalization, Other)
  Sender: FDA-Public Use
  Company Number: FR-BRISTOL-MYERS SQUIBB COMPANY-BMS-2017-078756

PATIENT
  Age: 58 Year
  Sex: Male
  Weight: 73 kg

DRUGS (10)
  1. FOSRENOL [Concomitant]
     Active Substance: LANTHANUM CARBONATE
     Indication: CHRONIC KIDNEY DISEASE
     Dosage: 1000 MG, TID
     Route: 065
  2. DUPHALAC [Concomitant]
     Active Substance: LACTULOSE
     Indication: CONSTIPATION
     Dosage: UNK
     Route: 065
  3. CALCIDIA [Concomitant]
     Active Substance: CALCIUM POLYCARBOPHIL
     Indication: CHRONIC KIDNEY DISEASE
     Dosage: UNK, BID
     Route: 065
     Dates: start: 20101124
  4. APROVEL [Concomitant]
     Active Substance: IRBESARTAN
     Indication: HYPERTENSION
     Dosage: UNK
     Route: 065
  5. INEXIUM                            /01479302/ [Concomitant]
     Active Substance: ESOMEPRAZOLE MAGNESIUM
     Indication: PRODUCT USED FOR UNKNOWN INDICATION
     Dosage: 40 MG, QD
     Route: 065
  6. RENVELA [Concomitant]
     Active Substance: SEVELAMER CARBONATE
     Indication: CHRONIC KIDNEY DISEASE
     Dosage: 2400 MG, TID
     Route: 065
     Dates: start: 20110825
  7. REFERO [Concomitant]
     Indication: PRODUCT USED FOR UNKNOWN INDICATION
     Dosage: 550 MG, BID
     Route: 065
  8. AVLOCARDYL                         /00030001/ [Concomitant]
     Active Substance: PROPRANOLOL HYDROCHLORIDE
     Indication: PRODUCT USED FOR UNKNOWN INDICATION
     Dosage: 80 MG, QD
     Route: 065
     Dates: start: 20100326
  9. AVODART [Concomitant]
     Active Substance: DUTASTERIDE
     Indication: BENIGN PROSTATIC HYPERPLASIA
     Dosage: 0.5 MG, QD
     Route: 065
     Dates: start: 20100608
  10. ENTECAVIR. [Suspect]
     Active Substance: ENTECAVIR
     Indication: HEPATITIS B
     Dosage: 0.5 MG, UNK
     Route: 065
     Dates: start: 20140617

REACTIONS (14)
  - Hepatic encephalopathy [Unknown]
  - Duodenal ulcer perforation [Unknown]
  - Bone pain [Unknown]
  - Hepatocellular carcinoma [Unknown]
  - Goitre [Unknown]
  - Renal failure [Unknown]
  - Peritonitis [Unknown]
  - Hypocalcaemia [Unknown]
  - Shock haemorrhagic [Unknown]
  - Complications of transplanted kidney [Unknown]
  - Hyperparathyroidism tertiary [Not Recovered/Not Resolved]
  - Hyperphosphataemia [Unknown]
  - Pruritus [Unknown]
  - Septic shock [Fatal]

NARRATIVE: CASE EVENT DATE: 20160307
